FAERS Safety Report 6733581-3 (Version None)
Quarter: 2010Q2

REPORT INFORMATION
  Report Type: 
  Country: None (occurrence: None)
  Receive Date: 20100520
  Receipt Date: 20100512
  Transmission Date: 20101027
  Serious: Yes (Hospitalization)
  Sender: FDA-Public Use
  Company Number: JP-MPIJNJ-2010-02225

PATIENT

DRUGS (5)
  1. VELCADE [Suspect]
     Indication: MULTIPLE MYELOMA
     Dosage: 2.1 MG, UNK
     Route: 042
     Dates: start: 20080912, end: 20100407
  2. CONIEL [Concomitant]
     Indication: HYPERTENSION
     Dosage: 4 MG, UNK
     Route: 048
  3. ASPIRIN [Concomitant]
     Indication: ANGINA PECTORIS
     Dosage: 100 MG, UNK
     Route: 048
     Dates: start: 20091029
  4. SIGMART [Concomitant]
     Indication: ANGINA PECTORIS
     Dosage: 10 MG, UNK
     Route: 048
     Dates: start: 20091029
  5. ARTIST [Concomitant]
     Indication: HYPERTENSION
     Dosage: 2.5 MG, UNK
     Route: 048
     Dates: start: 20100209

REACTIONS (1)
  - PNEUMONIA [None]
